FAERS Safety Report 23619337 (Version 5)
Quarter: 2024Q2

REPORT INFORMATION
  Report Type: Report from Study
  Country: US (occurrence: US)
  Receive Date: 20240311
  Receipt Date: 20240530
  Transmission Date: 20240716
  Serious: No
  Sender: FDA-Public Use
  Company Number: US-JNJFOC-20240245448

PATIENT
  Age: 59 Year
  Sex: Female
  Weight: 49.94 kg

DRUGS (6)
  1. STELARA [Suspect]
     Active Substance: USTEKINUMAB
     Indication: Crohn^s disease
     Dosage: LAST APPLICATION 15-FEB-2024
     Route: 058
     Dates: start: 2019
  2. STELARA [Suspect]
     Active Substance: USTEKINUMAB
  3. BLACK COHOSH [Concomitant]
     Active Substance: BLACK COHOSH
     Dosage: FOR SLEEP
     Dates: start: 20200101
  4. ELM [Concomitant]
     Active Substance: ELM
     Dosage: FOR DIGESTIVE
     Dates: start: 20220105
  5. EVENING PRIMROSE [Concomitant]
     Dosage: FOR SLEEP
     Dates: start: 20200101
  6. LYSINE [Concomitant]
     Active Substance: LYSINE
     Dosage: FOR IMMUNE
     Dates: start: 2015

REACTIONS (4)
  - Device issue [Unknown]
  - Needle issue [Unknown]
  - Product dose omission issue [Unknown]
  - Injury associated with device [Unknown]

NARRATIVE: CASE EVENT DATE: 20240215
